FAERS Safety Report 11279333 (Version 1)
Quarter: 2015Q3

REPORT INFORMATION
  Report Type: Report from Study
  Country: BE (occurrence: BE)
  Receive Date: 20150717
  Receipt Date: 20150717
  Transmission Date: 20151125
  Serious: Yes (Other)
  Sender: FDA-Public Use
  Company Number: BE-ABBVIE-15K-013-1421816-00

PATIENT
  Age: 63 Year
  Sex: Female
  Weight: 85 kg

DRUGS (2)
  1. HUMIRA [Suspect]
     Active Substance: ADALIMUMAB
     Indication: COLITIS ULCERATIVE
     Route: 058
     Dates: start: 201506, end: 20150629
  2. HUMIRA [Suspect]
     Active Substance: ADALIMUMAB
     Indication: CROHN^S DISEASE
     Dosage: START DOSE
     Route: 058
     Dates: start: 20150615, end: 20150615

REACTIONS (7)
  - Pain in extremity [Recovering/Resolving]
  - Cough [Unknown]
  - Dizziness [Recovering/Resolving]
  - Noninfective gingivitis [Recovering/Resolving]
  - Dysphagia [Unknown]
  - Respiratory disorder [Unknown]
  - Limb discomfort [Recovering/Resolving]

NARRATIVE: CASE EVENT DATE: 20150615
